FAERS Safety Report 13079143 (Version 1)
Quarter: 2017Q1

REPORT INFORMATION
  Report Type: Report from Study
  Country: JP (occurrence: JP)
  Receive Date: 20170102
  Receipt Date: 20170102
  Transmission Date: 20170428
  Serious: Yes (Death, Other)
  Sender: FDA-Public Use
  Company Number: JP-ROCHE-1329613

PATIENT

DRUGS (4)
  1. MYCOPHENOLATE MOFETIL. [Suspect]
     Active Substance: MYCOPHENOLATE MOFETIL
     Route: 065
  2. CYCLOSPORINE. [Suspect]
     Active Substance: CYCLOSPORINE
     Indication: PROPHYLAXIS AGAINST TRANSPLANT REJECTION
     Dosage: CYCLOSPORINE WERE CONTINUED UNTIL 60 DAYS AND THEN TAPERED AND STOPPED FROM 150 DAYS
     Route: 065
  3. TACROLIMUS. [Suspect]
     Active Substance: TACROLIMUS
     Indication: PROPHYLAXIS AGAINST TRANSPLANT REJECTION
     Dosage: TACROLIMUS WERE CONTINUED UNTIL 100 DAYS AND THEN TAPERED AND STOPPED FROM 180 DAYS
     Route: 065
  4. MYCOPHENOLATE MOFETIL. [Suspect]
     Active Substance: MYCOPHENOLATE MOFETIL
     Indication: PROPHYLAXIS AGAINST TRANSPLANT REJECTION
     Dosage: MMF DOSE WAS TAPERED ACCORDING TO PLAN, STARTING ON DAY 30-40 WITH CESSATION BY DAY 100.
     Route: 065

REACTIONS (8)
  - Diarrhoea [Unknown]
  - Neurotoxicity [Unknown]
  - Cardiotoxicity [Unknown]
  - Stomatitis [Unknown]
  - Infection [Fatal]
  - Sepsis [Unknown]
  - Hepatotoxicity [Unknown]
  - Pulmonary toxicity [Unknown]
